FAERS Safety Report 5764010-4 (Version None)
Quarter: 2008Q2

REPORT INFORMATION
  Report Type: 
  Country: None (occurrence: None)
  Receive Date: 20080609
  Receipt Date: 20080215
  Transmission Date: 20081010
  Serious: No
  Sender: FDA-Public Use
  Company Number: 002#2#2008-00064

PATIENT
  Age: 78 Year
  Sex: Male
  Weight: 81.6475 kg

DRUGS (3)
  1. NEUPRO [Suspect]
     Indication: PARKINSON'S DISEASE
     Dosage: 2MG/24H, 1 IN 1 D, TRANSDERMAL ; 4MG/24H,1 IN 1 D, TRANSDERMAL ; 6MG/24H,1 IN 1 D, TRANSDERMAL
     Route: 062
     Dates: start: 20070901, end: 20070901
  2. NEUPRO [Suspect]
     Indication: PARKINSON'S DISEASE
     Dosage: 2MG/24H, 1 IN 1 D, TRANSDERMAL ; 4MG/24H,1 IN 1 D, TRANSDERMAL ; 6MG/24H,1 IN 1 D, TRANSDERMAL
     Route: 062
     Dates: start: 20070901, end: 20070901
  3. NEUPRO [Suspect]
     Indication: PARKINSON'S DISEASE
     Dosage: 2MG/24H, 1 IN 1 D, TRANSDERMAL ; 4MG/24H,1 IN 1 D, TRANSDERMAL ; 6MG/24H,1 IN 1 D, TRANSDERMAL
     Route: 062
     Dates: start: 20071001

REACTIONS (8)
  - APPLICATION SITE ERYTHEMA [None]
  - APPLICATION SITE IRRITATION [None]
  - APPLICATION SITE PRURITUS [None]
  - APPLICATION SITE REACTION [None]
  - INSOMNIA [None]
  - PHARMACEUTICAL PRODUCT COMPLAINT [None]
  - RESTLESSNESS [None]
  - WRONG TECHNIQUE IN DRUG USAGE PROCESS [None]
